FAERS Safety Report 13512997 (Version 1)
Quarter: 2017Q2

REPORT INFORMATION
  Report Type: Spontaneous
  Country: US (occurrence: US)
  Receive Date: 20170504
  Receipt Date: 20170504
  Transmission Date: 20170830
  Serious: Yes (Hospitalization)
  Sender: FDA-Public Use
  Company Number: None

PATIENT
  Age: 64 Year
  Sex: Male
  Weight: 132.6 kg

DRUGS (13)
  1. XANAX [Concomitant]
     Active Substance: ALPRAZOLAM
  2. LINAGLIPITIN [Concomitant]
     Active Substance: LINAGLIPTIN
  3. XANAX [Suspect]
     Active Substance: ALPRAZOLAM
     Indication: SLEEP DISORDER
     Dosage: NIGHTLY?DATES TO USE CHRONIC
     Route: 048
  4. ATORVASTATIN [Concomitant]
     Active Substance: ATORVASTATIN
  5. FLUROMETHOLONE [Concomitant]
  6. HYDROMORPHONE [Suspect]
     Active Substance: HYDROMORPHONE
  7. XANAX [Suspect]
     Active Substance: ALPRAZOLAM
     Indication: ANXIETY
     Dosage: NIGHTLY?DATES TO USE CHRONIC
     Route: 048
  8. VITAMIN D [Concomitant]
     Active Substance: CHOLECALCIFEROL
  9. TRAZODONE 100MG PO NIGHTLY [Suspect]
     Active Substance: TRAZODONE HYDROCHLORIDE
     Indication: PAIN
     Dosage: DATE TO USE RECENT  Q4HR PRN
     Route: 042
  10. ASA [Concomitant]
     Active Substance: ASPIRIN
  11. SOTALO [Concomitant]
  12. METFORMIN [Concomitant]
     Active Substance: METFORMIN HYDROCHLORIDE
  13. ZOLPIDEM 5MG PO NIGHTLY PRN [Suspect]
     Active Substance: ZOLPIDEM\ZOLPIDEM TARTRATE

REACTIONS (2)
  - Wound infection [None]
  - Respiratory failure [None]

NARRATIVE: CASE EVENT DATE: 20161026
